FAERS Safety Report 22879272 (Version 4)
Quarter: 2023Q4

REPORT INFORMATION
  Report Type: Report from Study
  Country: US (occurrence: None)
  Receive Date: 20230829
  Receipt Date: 20231031
  Transmission Date: 20240110
  Serious: Yes (Other)
  Sender: FDA-Public Use
  Company Number: 2023A191446

PATIENT
  Age: 62 Year
  Sex: Female
  Weight: 83 kg

DRUGS (9)
  1. CALQUENCE [Suspect]
     Active Substance: ACALABRUTINIB
     Indication: Chronic lymphocytic leukaemia
     Route: 048
     Dates: start: 20230629
  2. CALQUENCE [Suspect]
     Active Substance: ACALABRUTINIB
     Indication: Chronic lymphocytic leukaemia
     Route: 048
     Dates: start: 20230629
  3. ALLOPURINOL [Concomitant]
     Active Substance: ALLOPURINOL
     Dosage: ONE TABLET EVERYDAY
     Route: 048
  4. ATIVAN [Concomitant]
     Active Substance: LORAZEPAM
     Dosage: 1-2 TABLETS
     Route: 048
  5. HYDROXYZINE [Concomitant]
     Active Substance: HYDROXYZINE HYDROCHLORIDE
     Dosage: AS DIRECTED
     Route: 048
  6. LEVOTHYROXINE [Concomitant]
     Active Substance: LEVOTHYROXINE
     Dosage: ONE TABLET EVERYDAY
     Route: 048
  7. VITAMIN D3 [Concomitant]
     Active Substance: CHOLECALCIFEROL
     Dosage: 1000 UNITS, AS DIRECTED
     Route: 048
  8. TOPROL XL [Concomitant]
     Active Substance: METOPROLOL SUCCINATE
  9. WELLBUTRIN XL [Concomitant]
     Active Substance: BUPROPION HYDROCHLORIDE

REACTIONS (19)
  - Myocardial necrosis marker increased [Unknown]
  - Cardiac disorder [Unknown]
  - Arrhythmia [Unknown]
  - Acute cardiac event [Unknown]
  - Type V hyperlipidaemia [Unknown]
  - Palpitations [Recovered/Resolved]
  - Tachycardia [Unknown]
  - Mitral valve incompetence [Unknown]
  - Tricuspid valve incompetence [Unknown]
  - Ventricular hypertrophy [Unknown]
  - Mitral valve thickening [Unknown]
  - Aortic valve thickening [Unknown]
  - Pulmonary valve incompetence [Unknown]
  - Cardiac failure congestive [Unknown]
  - Ventricular extrasystoles [Unknown]
  - Decreased activity [Unknown]
  - Blood glucose increased [Unknown]
  - Blood chloride increased [Unknown]
  - Product dose omission issue [Unknown]

NARRATIVE: CASE EVENT DATE: 20230714
